FAERS Safety Report 16404392 (Version 1)
Quarter: 2019Q2

REPORT INFORMATION
  Report Type: Spontaneous
  Country: US (occurrence: US)
  Receive Date: 20190607
  Receipt Date: 20190607
  Transmission Date: 20190711
  Serious: Yes (Other)
  Sender: FDA-Public Use
  Company Number: US-009507513-1905USA014289

PATIENT
  Sex: Female

DRUGS (1)
  1. NEXPLANON [Suspect]
     Active Substance: ETONOGESTREL
     Dosage: 68 MG / 1 IMPLANT EVERY 3 YEARS
     Route: 059
     Dates: start: 201808

REACTIONS (2)
  - Device dislocation [Not Recovered/Not Resolved]
  - Burning sensation [Unknown]
